FAERS Safety Report 9905416 (Version 1)
Quarter: 2013Q2

REPORT INFORMATION
  Report Type: Spontaneous
  Country: US (occurrence: None)
  Receive Date: 20130305
  Receipt Date: 20130305
  Transmission Date: 20140414
  Serious: Yes (Hospitalization)
  Sender: FDA-Public Use
  Company Number: 163-21880-12041626

PATIENT
  Age: 85 Year
  Sex: Female

DRUGS (9)
  1. REVLIMID [Suspect]
     Indication: PLASMA CELL MYELOMA
     Dosage: 5 MG, X 9, PO
     Route: 048
     Dates: start: 20111014
  2. AMLODIPINE BESYLATE (AMLODIPINE BESILATE) [Concomitant]
  3. CALCIUM +D (OS-CAL) [Concomitant]
  4. CARVEDILOL (CARVEDILOL) [Concomitant]
  5. DEXAMETHASONE (DEXAMETHASONE) [Concomitant]
  6. ECOTRIN (ACETYLALICYLIC ACID) [Concomitant]
  7. FERROUS SULFATE (FERROUS SULFATE) [Concomitant]
  8. HYDROCHLOROTHIAZIDE (HYDROCHLOROTHIAZIDE) [Concomitant]
  9. LISINOPRIL (LISINOPRIL) [Suspect]

REACTIONS (1)
  - Staphylococcal infection [None]
